FAERS Safety Report 12642847 (Version 6)
Quarter: 2016Q4

REPORT INFORMATION
  Report Type: Spontaneous
  Country: US (occurrence: US)
  Receive Date: 20160811
  Receipt Date: 20161220
  Transmission Date: 20170207
  Serious: Yes (Congenital Anomaly, Other)
  Sender: FDA-Public Use
  Company Number: PHHY2015US126097

PATIENT
  Sex: Female

DRUGS (1)
  1. ZOFRAN ODT [Suspect]
     Active Substance: ONDANSETRON HYDROCHLORIDE
     Indication: FOETAL EXPOSURE DURING PREGNANCY
     Dosage: MOTHER^S DOSE: 8 MG, PER 8 HOURS (Q8H)
     Route: 064

REACTIONS (11)
  - Heart disease congenital [Unknown]
  - Ventricular septal defect [Unknown]
  - Congenital pulmonary valve atresia [Unknown]
  - Double outlet right ventricle [Unknown]
  - Right ventricular dilatation [Unknown]
  - Right ventricular hypertrophy [Unknown]
  - Atrial septal defect [Unknown]
  - Pulmonary artery stenosis congenital [Unknown]
  - Cardiac murmur [Unknown]
  - Transposition of the great vessels [Unknown]
  - Foetal exposure during pregnancy [Unknown]
